FAERS Safety Report 24795631 (Version 1)
Quarter: 2025Q1

REPORT INFORMATION
  Report Type: Spontaneous
  Country: US (occurrence: US)
  Receive Date: 20250101
  Receipt Date: 20250101
  Transmission Date: 20250408
  Serious: No
  Sender: ROCHE
  Company Number: US-ROCHE-10000167658

PATIENT
  Age: 82 Year
  Sex: Female

DRUGS (1)
  1. ACTEMRA ACTPEN [Suspect]
     Active Substance: TOCILIZUMAB
     Indication: Giant cell arteritis
     Dosage: STRENGTH: 162MG/0.9ML
     Route: 058

REACTIONS (7)
  - COVID-19 [Unknown]
  - Feeling abnormal [Unknown]
  - Initial insomnia [Unknown]
  - Thyroid function test abnormal [Unknown]
  - Vision blurred [Unknown]
  - Eye disorder [Unknown]
  - Intercepted product storage error [Unknown]
